FAERS Safety Report 5967973-7 (Version None)
Quarter: 2008Q4

REPORT INFORMATION
  Report Type: 
  Country: None (occurrence: None)
  Receive Date: 20081126
  Receipt Date: 20081117
  Transmission Date: 20090506
  Serious: Yes (Hospitalization)
  Sender: FDA-Public Use
  Company Number: DE-AVENTIS-200813011DE

PATIENT
  Age: 59 Year
  Sex: Male

DRUGS (9)
  1. DOCETAXEL [Suspect]
     Indication: NON-SMALL CELL LUNG CANCER
     Route: 041
  2. CETUXIMAB [Suspect]
     Indication: NON-SMALL CELL LUNG CANCER
     Route: 042
  3. CARBOPLATIN [Suspect]
     Indication: NON-SMALL CELL LUNG CANCER
     Dosage: DOSE: AUC 5
     Route: 042
  4. METFORMIN HCL [Concomitant]
     Indication: DRUG USE FOR UNKNOWN INDICATION
  5. ESOMEPRAZOLE MAGNESIUM [Concomitant]
     Indication: DRUG USE FOR UNKNOWN INDICATION
  6. METAMIZOL [Concomitant]
     Indication: DRUG USE FOR UNKNOWN INDICATION
  7. DICLO [Concomitant]
     Indication: DRUG USE FOR UNKNOWN INDICATION
  8. GLUCOPHAGE [Concomitant]
     Indication: DRUG USE FOR UNKNOWN INDICATION
  9. FORTECORTIN                        /00016001/ [Concomitant]
     Indication: DRUG USE FOR UNKNOWN INDICATION

REACTIONS (3)
  - CYTOKINE RELEASE SYNDROME [None]
  - FLUSHING [None]
  - HYPERHIDROSIS [None]
